FAERS Safety Report 12394714 (Version 1)
Quarter: 2016Q2

REPORT INFORMATION
  Report Type: Spontaneous
  Country: GB (occurrence: GB)
  Receive Date: 20160523
  Receipt Date: 20160523
  Transmission Date: 20160815
  Serious: Yes (Death)
  Sender: FDA-Public Use
  Company Number: GB-HQ SPECIALTY-GB-2016INT000298

PATIENT

DRUGS (4)
  1. FILGRASTIM [Concomitant]
     Active Substance: FILGRASTIM
     Indication: GERM CELL NEOPLASM
     Dosage: 300 ?G/DAY, GIVEN ON ALTERNATE DAYS FROM DAY 2 TO DAY 14
     Route: 065
  2. OXALIPLATIN. [Suspect]
     Active Substance: OXALIPLATIN
     Indication: GERM CELL NEOPLASM
     Dosage: 100 MG/M2, DAY 1
     Route: 065
  3. IRINOTECAN [Suspect]
     Active Substance: IRINOTECAN
     Indication: GERM CELL NEOPLASM
     Dosage: 200 MG/M2, DAY 1
     Route: 065
  4. PACLITAXEL. [Suspect]
     Active Substance: PACLITAXEL
     Indication: GERM CELL NEOPLASM
     Dosage: 80 MG/M2, DAYS 1, 8 AND 15
     Route: 065

REACTIONS (1)
  - Neutropenic sepsis [Fatal]
